FAERS Safety Report 11231669 (Version 2)
Quarter: 2015Q3

REPORT INFORMATION
  Report Type: Spontaneous
  Country: GB (occurrence: GB)
  Receive Date: 20150701
  Receipt Date: 20150702
  Transmission Date: 20151125
  Serious: Yes (Other)
  Sender: FDA-Public Use
  Company Number: GB-TEVA-573777ACC

PATIENT
  Age: 59 Year
  Sex: Female

DRUGS (3)
  1. FOLIC ACID. [Concomitant]
     Active Substance: FOLIC ACID
     Indication: RHEUMATOID ARTHRITIS
     Dosage: UNK
     Dates: start: 201303, end: 201505
  2. METHOTREXATE [Suspect]
     Active Substance: METHOTREXATE
     Indication: RHEUMATOID ARTHRITIS
  3. METHOTREXATE [Suspect]
     Active Substance: METHOTREXATE
     Indication: CHEMOTHERAPY
     Dosage: 2.1429 MILLIGRAM DAILY; 15 MG, WEEKLY (2.5X6 WEEKLY)
     Dates: start: 2013, end: 201503

REACTIONS (9)
  - Fatigue [Unknown]
  - Musculoskeletal stiffness [Unknown]
  - Malaise [Not Recovered/Not Resolved]
  - Headache [Not Recovered/Not Resolved]
  - Viral infection [Unknown]
  - Vertigo [Unknown]
  - Deafness unilateral [Unknown]
  - Oral pain [Not Recovered/Not Resolved]
  - Mouth ulceration [Recovered/Resolved]

NARRATIVE: CASE EVENT DATE: 201303
